FAERS Safety Report 10668391 (Version 1)
Quarter: 2014Q4

REPORT INFORMATION
  Report Type: Spontaneous
  Country: IL (occurrence: IL)
  Receive Date: 20141222
  Receipt Date: 20141222
  Transmission Date: 20150529
  Serious: Yes (Other)
  Sender: FDA-Public Use
  Company Number: IL-SHIRE-IL201408926

PATIENT
  Age: 77 Year
  Sex: Male

DRUGS (1)
  1. VPRIV [Suspect]
     Active Substance: VELAGLUCERASE ALFA
     Indication: GAUCHER^S DISEASE
     Dosage: 2000 IU, OTHER (PER MONTH)
     Route: 041
     Dates: start: 201305

REACTIONS (2)
  - Fall [Recovered/Resolved]
  - Wrist fracture [Unknown]
